FAERS Safety Report 5673635-6 (Version None)
Quarter: 2008Q1

REPORT INFORMATION
  Report Type: 
  Country: None (occurrence: None)
  Receive Date: 20080319
  Receipt Date: 20080307
  Transmission Date: 20080703
  Serious: Yes (Disabling, Other)
  Sender: FDA-Public Use
  Company Number: FR-PFIZER INC-2007091443

PATIENT
  Sex: Female
  Weight: 52 kg

DRUGS (16)
  1. LYRICA [Suspect]
     Indication: NEURALGIA
     Route: 048
     Dates: start: 20071002, end: 20071112
  2. IMUREL [Concomitant]
     Dates: start: 20070924, end: 20080107
  3. CARVEDILOL [Concomitant]
     Route: 048
     Dates: start: 20070924, end: 20080107
  4. HYDROCORTISONE [Concomitant]
     Dates: start: 20070924, end: 20080107
  5. ACETYLSALICYLATE LYSINE [Concomitant]
     Route: 048
     Dates: start: 20070924, end: 20080107
  6. TRINITRINE [Concomitant]
     Dates: start: 20070924, end: 20080107
  7. RAMIPRIL [Concomitant]
     Route: 048
     Dates: start: 20070924, end: 20080107
  8. FUROSEMIDE [Concomitant]
     Route: 048
     Dates: start: 20070924, end: 20080107
  9. POTASSIUM CHLORIDE [Concomitant]
     Route: 048
     Dates: start: 20070924, end: 20080107
  10. SODIUM CHLORIDE INJ [Concomitant]
     Route: 048
     Dates: start: 20070924, end: 20080107
  11. ATORVASTATIN CALCIUM [Concomitant]
     Dates: start: 20070924, end: 20080107
  12. PANTOPRAZOLE SODIUM [Concomitant]
     Dates: start: 20071003, end: 20080107
  13. BUDESONIDE [Concomitant]
     Dates: start: 20070925, end: 20080107
  14. MESALAMINE [Concomitant]
     Dates: start: 20071001, end: 20080107
  15. AMITRIPTYLINE HYDROCHLORIDE [Concomitant]
     Dates: start: 20070924, end: 20080107
  16. FLUINDIONE [Concomitant]
     Dates: start: 20071009, end: 20071011

REACTIONS (2)
  - FACE OEDEMA [None]
  - GENERALISED OEDEMA [None]
